FAERS Safety Report 24648270 (Version 1)
Quarter: 2024Q4

REPORT INFORMATION
  Report Type: Spontaneous
  Country: CA (occurrence: CA)
  Receive Date: 20241121
  Receipt Date: 20241121
  Transmission Date: 20250115
  Serious: Yes (Death, Life-Threatening)
  Sender: CSL BEHRING
  Company Number: CA-BEH-2024185513

PATIENT
  Age: 77 Year
  Sex: Male

DRUGS (2)
  1. ALBUMIN HUMAN [Suspect]
     Active Substance: ALBUMIN HUMAN
     Indication: Hypoalbuminaemia
     Dosage: 500 ML, TID (1 EVERY 8 HOURS)
     Route: 042
  2. SODIUM CHLORIDE [Concomitant]
     Active Substance: SODIUM CHLORIDE
     Indication: Hypoalbuminaemia
     Dosage: 500 ML, TID (1 EVERY 8 HOURS)
     Route: 042

REACTIONS (4)
  - Hypoxia [Fatal]
  - Tachypnoea [Fatal]
  - Transfusion-related circulatory overload [Fatal]
  - Dyspnoea [Fatal]
